FAERS Safety Report 5069619-1 (Version None)
Quarter: 2006Q3

REPORT INFORMATION
  Report Type: 
  Country: None (occurrence: None)
  Receive Date: 20060803
  Receipt Date: 20060203
  Transmission Date: 20061208
  Serious: Yes (Other)
  Sender: FDA-Public Use
  Company Number: GBWYE361703FEB06

PATIENT
  Sex: Female
  Weight: 106 kg

DRUGS (5)
  1. ENBREL [Suspect]
     Indication: PSORIASIS
     Route: 058
     Dates: start: 20050817, end: 20060127
  2. EXOREX [Concomitant]
     Dates: start: 20040106
  3. SOYA OIL [Concomitant]
     Dates: start: 20040701
  4. DERMOL [Concomitant]
     Dates: start: 20040701
  5. DOVONEX [Concomitant]
     Dates: start: 20040131

REACTIONS (2)
  - BLOOD PRESSURE INCREASED [None]
  - SENSORY LOSS [None]
